FAERS Safety Report 7621173 (Version 2)
Quarter: 2013Q4

REPORT INFORMATION
  Report Type: Spontaneous
  Country: US (occurrence: US)
  Receive Date: 20101008
  Receipt Date: 20131216
  Transmission Date: 20140711
  Serious: Yes (Hospitalization)
  Sender: FDA-Public Use
  Company Number: US-BAYER-201035914NA

PATIENT
  Age: 23 Year
  Sex: Female
  Weight: 170 kg

DRUGS (2)
  1. YASMIN [Suspect]
     Route: 048
     Dates: start: 200109, end: 200405
  2. YAZ [Suspect]
     Route: 048
     Dates: start: 200109, end: 200405

REACTIONS (3)
  - Gallbladder disorder [Unknown]
  - Cholecystitis chronic [None]
  - Abdominal pain [None]
